FAERS Safety Report 5076524-3 (Version None)
Quarter: 2006Q3

REPORT INFORMATION
  Report Type: 
  Country: None (occurrence: None)
  Receive Date: 20060808
  Receipt Date: 20060808
  Transmission Date: 20061208
  Serious: Yes (Life-Threatening)
  Sender: FDA-Public Use
  Company Number: None

PATIENT
  Sex: Male
  Weight: 97.5234 kg

DRUGS (1)
  1. PAXIL CR [Suspect]
     Indication: ANXIETY
     Dosage: 25 MG 1 PER DAY PO
     Route: 048
     Dates: start: 20051103, end: 20060720

REACTIONS (4)
  - ALCOHOLISM [None]
  - FEELING ABNORMAL [None]
  - LEGAL PROBLEM [None]
  - THINKING ABNORMAL [None]
